FAERS Safety Report 20553921 (Version 4)
Quarter: 2022Q3

REPORT INFORMATION
  Report Type: Report from Study
  Country: CN (occurrence: CN)
  Receive Date: 20220304
  Receipt Date: 20220830
  Transmission Date: 20221027
  Serious: Yes (Life-Threatening, Hospitalization)
  Sender: FDA-Public Use
  Company Number: CN-AstraZeneca-2021A808603

PATIENT
  Age: 61 Year
  Sex: Male
  Weight: 58 kg

DRUGS (20)
  1. FAM-TRASTUZUMAB DERUXTECAN-NXKI [Suspect]
     Active Substance: FAM-TRASTUZUMAB DERUXTECAN-NXKI
     Indication: Adenocarcinoma gastric
     Dosage: 420 MG
     Route: 042
     Dates: start: 20210929, end: 20210929
  2. FAM-TRASTUZUMAB DERUXTECAN-NXKI [Suspect]
     Active Substance: FAM-TRASTUZUMAB DERUXTECAN-NXKI
     Dosage: 420 MG
     Route: 042
     Dates: start: 20211020, end: 20211020
  3. FAM-TRASTUZUMAB DERUXTECAN-NXKI [Suspect]
     Active Substance: FAM-TRASTUZUMAB DERUXTECAN-NXKI
     Dosage: 420 MG
     Route: 042
     Dates: start: 20211110, end: 20211110
  4. FAM-TRASTUZUMAB DERUXTECAN-NXKI [Suspect]
     Active Substance: FAM-TRASTUZUMAB DERUXTECAN-NXKI
     Dosage: UNK
  5. HERBALS\DIAMMONIUM GLYCYRRHIZINATE [Concomitant]
     Active Substance: HERBALS\DIAMMONIUM GLYCYRRHIZINATE
     Indication: Hepatic function abnormal
     Route: 048
     Dates: start: 20211006, end: 20211112
  6. HERBALS\DIAMMONIUM GLYCYRRHIZINATE [Concomitant]
     Active Substance: HERBALS\DIAMMONIUM GLYCYRRHIZINATE
     Indication: Jaundice cholestatic
  7. PHOSPHOLIPID [Concomitant]
     Active Substance: PHOSPHOLIPID
     Indication: Jaundice cholestatic
     Dosage: 456 MG
     Route: 048
     Dates: start: 20211013, end: 20211112
  8. LEUCOGEN [Concomitant]
     Active Substance: LEUCOGEN
     Indication: White blood cell count decreased
     Dosage: 20 MG
     Route: 048
     Dates: start: 20211014, end: 20211020
  9. LEUCOGEN [Concomitant]
     Active Substance: LEUCOGEN
     Indication: Neutrophil count decreased
     Dosage: 20 MG
     Route: 048
     Dates: start: 20211014
  10. PALONOSETRON HYDROCHLORIDE [Concomitant]
     Active Substance: PALONOSETRON HYDROCHLORIDE
     Indication: Prophylaxis of nausea and vomiting
     Dosage: 250 UG
     Route: 042
     Dates: start: 20210929, end: 20210929
  11. PALONOSETRON HYDROCHLORIDE [Concomitant]
     Active Substance: PALONOSETRON HYDROCHLORIDE
     Indication: Premedication
     Dosage: 250 NG
     Route: 042
     Dates: start: 20211020, end: 20211020
  12. PALONOSETRON HYDROCHLORIDE [Concomitant]
     Active Substance: PALONOSETRON HYDROCHLORIDE
     Dosage: 250 UG
     Route: 042
     Dates: start: 20211110, end: 20211110
  13. ESOMEPRAZOLE SODIUM [Concomitant]
     Active Substance: ESOMEPRAZOLE SODIUM
     Indication: Prophylaxis of nausea and vomiting
     Dosage: 40 MG
     Route: 042
     Dates: start: 20210929, end: 20210929
  14. ESOMEPRAZOLE SODIUM [Concomitant]
     Active Substance: ESOMEPRAZOLE SODIUM
     Indication: Premedication
     Dosage: 40 MG
     Route: 042
     Dates: start: 20211110, end: 20211110
  15. APREPITANT [Concomitant]
     Active Substance: APREPITANT
     Indication: Prophylaxis of nausea and vomiting
     Dosage: 1 DF
     Route: 048
     Dates: start: 20210929, end: 20210929
  16. APREPITANT [Concomitant]
     Active Substance: APREPITANT
     Dosage: 1 DF
     Route: 048
     Dates: start: 20211020, end: 20211022
  17. APREPITANT [Concomitant]
     Active Substance: APREPITANT
     Dosage: DAILY
     Route: 048
     Dates: start: 20211110, end: 20211112
  18. IBUPROFEN [Concomitant]
     Active Substance: IBUPROFEN
     Indication: Pyrexia
     Dosage: 1 PACK AS REQUIRED
     Route: 048
     Dates: start: 20211112, end: 20211113
  19. IBUPROFEN [Concomitant]
     Active Substance: IBUPROFEN
     Dosage: 1 DF
     Route: 048
     Dates: start: 20211115, end: 20211115
  20. THROMBOPOIETIN [Concomitant]
     Active Substance: THROMBOPOIETIN
     Indication: Platelet count decreased
     Dosage: 1 ML
     Route: 030
     Dates: start: 20211027, end: 20211104

REACTIONS (2)
  - Platelet count decreased [Recovered/Resolved]
  - Jaundice cholestatic [Not Recovered/Not Resolved]

NARRATIVE: CASE EVENT DATE: 20211112
